FAERS Safety Report 8955848 (Version 1)
Quarter: 2012Q4

REPORT INFORMATION
  Report Type: 
  Country: NL (occurrence: NL)
  Receive Date: 20121210
  Receipt Date: 20121210
  Transmission Date: 20130627
  Serious: Yes (Hospitalization, Other)
  Sender: FDA-Public Use
  Company Number: NL-ACTELION-A-CH2012-75827

PATIENT
  Age: 11 Year
  Sex: Male

DRUGS (5)
  1. TRACLEER [Suspect]
     Indication: PULMONARY HYPERTENSION
     Dosage: 125 mg, bid
     Route: 048
  2. SILDENAFIL [Concomitant]
     Dosage: 40 mg, qd
  3. GAMMA GLOBULIN [Concomitant]
  4. PREDNISOLONE [Concomitant]
     Dosage: UNK g, UNK
     Route: 042
  5. CYCLOPHOSPHAMIDE [Concomitant]

REACTIONS (5)
  - Pulmonary haemorrhage [Recovering/Resolving]
  - Haemoptysis [Unknown]
  - Mechanical ventilation [Recovering/Resolving]
  - Exercise tolerance decreased [Recovering/Resolving]
  - Therapeutic embolisation [Recovering/Resolving]
